FAERS Safety Report 12304758 (Version 1)
Quarter: 2016Q2

REPORT INFORMATION
  Report Type: Spontaneous
  Country: US (occurrence: None)
  Receive Date: 20160425
  Receipt Date: 20160425
  Transmission Date: 20160815
  Serious: No
  Sender: FDA-Public Use
  Company Number: None

PATIENT
  Age: 73 Year
  Sex: Male

DRUGS (2)
  1. GAMMAGARD [Suspect]
     Active Substance: HUMAN IMMUNOGLOBULIN G
     Indication: CHRONIC LYMPHOCYTIC LEUKAEMIA
     Dosage: 35GM (TOTAL) EVERY 4 WEEKS IV
     Route: 042
     Dates: start: 20160408
  2. GAMMAGARD [Suspect]
     Active Substance: HUMAN IMMUNOGLOBULIN G
     Indication: CHRONIC LYMPHOCYTIC LEUKAEMIA
     Dosage: 35GM (TOTAL) EVERY 4 WEEKS IV
     Route: 042
     Dates: start: 20160408

REACTIONS (3)
  - Back pain [None]
  - Underdose [None]
  - Infusion related reaction [None]

NARRATIVE: CASE EVENT DATE: 20160408
